FAERS Safety Report 5409372-2 (Version None)
Quarter: 2007Q3

REPORT INFORMATION
  Report Type: 
  Country: None (occurrence: None)
  Receive Date: 20070807
  Receipt Date: 20070807
  Transmission Date: 20080115
  Serious: Yes (Life-Threatening, Hospitalization)
  Sender: FDA-Public Use
  Company Number: None

PATIENT
  Age: 31 Year
  Sex: Male
  Weight: 82 kg

DRUGS (2)
  1. GEODON [Suspect]
     Indication: AGITATION
     Dosage: 10-20MG Q2HOURS PRN IM
     Route: 030
     Dates: start: 20070802, end: 20070804
  2. GEODON [Suspect]
     Indication: ANXIETY
     Dosage: 10-20MG Q2HOURS PRN IM
     Route: 030
     Dates: start: 20070802, end: 20070804

REACTIONS (1)
  - NEUROLEPTIC MALIGNANT SYNDROME [None]
